FAERS Safety Report 12760121 (Version 1)
Quarter: 2016Q3

REPORT INFORMATION
  Report Type: Spontaneous
  Country: US (occurrence: US)
  Receive Date: 20160919
  Receipt Date: 20160919
  Transmission Date: 20161109
  Serious: Yes (Other)
  Sender: FDA-Public Use
  Company Number: US-MYLANLABS-2016M1037804

PATIENT

DRUGS (1)
  1. ENLON [Suspect]
     Active Substance: EDROPHONIUM CHLORIDE
     Indication: NEUROMUSCULAR BLOCKADE REVERSAL
     Dosage: 1 MG/KG, UNK
     Dates: start: 20160902, end: 20160902

REACTIONS (1)
  - Drug effect decreased [Recovered/Resolved]

NARRATIVE: CASE EVENT DATE: 20160902
